FAERS Safety Report 13559659 (Version 5)
Quarter: 2017Q3

REPORT INFORMATION
  Report Type: Report from Study
  Country: US (occurrence: US)
  Receive Date: 20170518
  Receipt Date: 20170703
  Transmission Date: 20171127
  Serious: Yes (Hospitalization, Other)
  Sender: FDA-Public Use
  Company Number: US-SA-2017SA086756

PATIENT
  Age: 48 Year
  Sex: Female

DRUGS (6)
  1. LEMTRADA [Suspect]
     Active Substance: ALEMTUZUMAB
     Indication: MULTIPLE SCLEROSIS
     Route: 041
     Dates: start: 20170508, end: 20170508
  2. LEMTRADA [Suspect]
     Active Substance: ALEMTUZUMAB
     Indication: MULTIPLE SCLEROSIS
     Route: 041
     Dates: start: 20170510, end: 20170511
  3. IBUPROFEN. [Concomitant]
     Active Substance: IBUPROFEN
     Indication: PREMEDICATION
     Route: 065
     Dates: start: 20170508
  4. ZOFRAN [Concomitant]
     Active Substance: ONDANSETRON HYDROCHLORIDE
     Dosage: EVERY 6 HOURS DURING INFUSION
     Route: 042
     Dates: start: 20170508
  5. BENADRYL [Concomitant]
     Active Substance: DIPHENHYDRAMINE HYDROCHLORIDE
     Indication: PRURITUS
     Dosage: DOSE: 25-50 MG
     Route: 042
     Dates: start: 20170508
  6. TYLENOL [Concomitant]
     Active Substance: ACETAMINOPHEN
     Indication: PREMEDICATION
     Route: 065
     Dates: start: 20170508

REACTIONS (42)
  - Pain in extremity [Recovering/Resolving]
  - Arthralgia [Recovering/Resolving]
  - Constipation [Unknown]
  - Headache [Recovered/Resolved]
  - Oxygen saturation decreased [Not Recovered/Not Resolved]
  - Influenza like illness [Recovered/Resolved]
  - Rales [Unknown]
  - Neutrophil morphology abnormal [Unknown]
  - Chest discomfort [Not Recovered/Not Resolved]
  - Pneumonitis [Unknown]
  - Palpitations [Unknown]
  - Haemoptysis [Unknown]
  - Pneumonia [Unknown]
  - Epistaxis [Not Recovered/Not Resolved]
  - Pharyngeal disorder [Unknown]
  - Paraesthesia [Recovering/Resolving]
  - Blood pressure decreased [Not Recovered/Not Resolved]
  - Fatigue [Recovering/Resolving]
  - Dizziness [Unknown]
  - Urinary retention [Unknown]
  - Dyspnoea exertional [Recovering/Resolving]
  - Muscle spasms [Recovered/Resolved]
  - Asthenia [Recovering/Resolving]
  - Cough [Unknown]
  - Muscular weakness [Not Recovered/Not Resolved]
  - Flushing [Unknown]
  - Swelling [Unknown]
  - Sleep apnoea syndrome [Unknown]
  - Nausea [Recovered/Resolved]
  - Eosinophil count decreased [Unknown]
  - Dysuria [Unknown]
  - Back pain [Recovering/Resolving]
  - Weight increased [Unknown]
  - Contusion [Not Recovered/Not Resolved]
  - Musculoskeletal stiffness [Unknown]
  - Platelet count decreased [Not Recovered/Not Resolved]
  - Feeling abnormal [Unknown]
  - Vertigo [Recovered/Resolved]
  - Heart rate increased [Not Recovered/Not Resolved]
  - Pruritus [Recovering/Resolving]
  - Lymphocyte count decreased [Unknown]
  - Monocyte count decreased [Unknown]

NARRATIVE: CASE EVENT DATE: 201705
